FAERS Safety Report 12003929 (Version 1)
Quarter: 2016Q1

REPORT INFORMATION
  Report Type: Report from Study
  Country: US (occurrence: US)
  Receive Date: 20160204
  Receipt Date: 20160204
  Transmission Date: 20160526
  Serious: No
  Sender: FDA-Public Use
  Company Number: US-ABBVIE-15K-163-1434938-00

PATIENT
  Age: 61 Year
  Sex: Male

DRUGS (1)
  1. HUMIRA [Suspect]
     Active Substance: ADALIMUMAB
     Indication: PSORIASIS
     Route: 065
     Dates: start: 20150605, end: 20150807

REACTIONS (9)
  - Purulent discharge [Unknown]
  - Erythema [Unknown]
  - Impaired healing [Unknown]
  - Rash macular [Unknown]
  - Arthropod bite [Unknown]
  - Wound [Unknown]
  - Wound infection [Recovering/Resolving]
  - Pain of skin [Unknown]
  - Skin infection [Unknown]

NARRATIVE: CASE EVENT DATE: 2015
